FAERS Safety Report 13054362 (Version 1)
Quarter: 2016Q4

REPORT INFORMATION
  Report Type: Spontaneous
  Country: FR (occurrence: FR)
  Receive Date: 20161222
  Receipt Date: 20161222
  Transmission Date: 20170207
  Serious: Yes (Hospitalization)
  Sender: FDA-Public Use
  Company Number: FR-PFIZER INC-3022022

PATIENT
  Age: 22 Year
  Sex: Female
  Weight: 97 kg

DRUGS (5)
  1. VINCRISTINE SULFATE. [Suspect]
     Active Substance: VINCRISTINE SULFATE
     Indication: ACUTE LYMPHOCYTIC LEUKAEMIA
     Dosage: 2 MG, FREQ: CYCLICAL
     Route: 041
     Dates: start: 20150716, end: 20150806
  2. DAUNORUBICINE [Suspect]
     Active Substance: DAUNORUBICIN
     Indication: ACUTE LYMPHOCYTIC LEUKAEMIA
     Dosage: 60 MG, FREQ: CYCLICAL
     Route: 041
     Dates: start: 20150716, end: 20150731
  3. CORTANCYL [Suspect]
     Active Substance: PREDNISONE
     Indication: T-CELL TYPE ACUTE LEUKAEMIA
     Dosage: 120 MG, FREQ: CYCLICAL
     Route: 048
     Dates: start: 20150716, end: 20150729
  4. ENDOXAN [Suspect]
     Active Substance: CYCLOPHOSPHAMIDE
     Indication: ACUTE LYMPHOCYTIC LEUKAEMIA
     Dosage: 1500 MG, FREQ: CYCLICAL
     Route: 041
     Dates: start: 20150716, end: 20150730
  5. KIDROLASE [Suspect]
     Active Substance: ASPARAGINASE
     Indication: ACUTE LYMPHOCYTIC LEUKAEMIA
     Dosage: 12000 IU, FREQ: CYCLICAL
     Route: 041
     Dates: start: 20150723, end: 20150810

REACTIONS (5)
  - Generalised tonic-clonic seizure [Recovered/Resolved]
  - Venous thrombosis [Recovered/Resolved]
  - Posterior reversible encephalopathy syndrome [Recovering/Resolving]
  - Blindness cortical [Recovering/Resolving]
  - Hypertension [Unknown]

NARRATIVE: CASE EVENT DATE: 20150718
